FAERS Safety Report 14413038 (Version 2)
Quarter: 2021Q4

REPORT INFORMATION
  Report Type: Spontaneous
  Country: FR (occurrence: FR)
  Receive Date: 20180119
  Receipt Date: 20211020
  Transmission Date: 20220303
  Serious: Yes (Hospitalization, Other)
  Sender: FDA-Public Use
  Company Number: FR-SHIRE-FR201733545

PATIENT
  Sex: Male

DRUGS (10)
  1. METHOTREXATE [Suspect]
     Active Substance: METHOTREXATE
     Indication: Acute lymphocytic leukaemia
     Dosage: 12 MG, UNK
     Route: 037
     Dates: start: 20171020
  2. METHOTREXATE [Suspect]
     Active Substance: METHOTREXATE
     Dosage: 16 MG, UNK
     Route: 048
     Dates: start: 20171026
  3. DEXAMETHASONE [Suspect]
     Active Substance: DEXAMETHASONE
     Indication: Acute lymphocytic leukaemia
     Dosage: 3.9 MG, UNK
     Route: 048
  4. DEXAMETHASONE [Suspect]
     Active Substance: DEXAMETHASONE
     Dosage: 3.9 MG, UNK
     Route: 048
     Dates: start: 20171019
  5. VINCRISTINE [Suspect]
     Active Substance: VINCRISTINE
     Indication: Acute lymphocytic leukaemia
     Dosage: 1 MG, UNK
     Route: 042
  6. VINCRISTINE [Suspect]
     Active Substance: VINCRISTINE
     Dosage: 1 MG, UNK
     Route: 042
     Dates: start: 20171019
  7. PEGASPARGASE [Suspect]
     Active Substance: PEGASPARGASE
     Indication: Acute lymphocytic leukaemia
     Dosage: 1625 UNK, UNK
     Route: 042
  8. PEGASPARGASE [Suspect]
     Active Substance: PEGASPARGASE
     Dosage: 1625 UNK, UNK
     Route: 042
     Dates: start: 20171026
  9. MERCAPTOPURINE [Suspect]
     Active Substance: MERCAPTOPURINE
     Indication: Acute lymphocytic leukaemia
     Dosage: 32 MG, UNK
     Route: 048
  10. MERCAPTOPURINE [Suspect]
     Active Substance: MERCAPTOPURINE
     Dosage: 32 MG, UNK
     Route: 048
     Dates: start: 20171019

REACTIONS (1)
  - Febrile bone marrow aplasia [Recovered/Resolved]

NARRATIVE: CASE EVENT DATE: 20171123
